FAERS Safety Report 12501428 (Version 1)
Quarter: 2016Q2

REPORT INFORMATION
  Report Type: Spontaneous
  Country: DE (occurrence: DE)
  Receive Date: 20160627
  Receipt Date: 20160627
  Transmission Date: 20160815
  Serious: Yes (Life-Threatening)
  Sender: FDA-Public Use
  Company Number: DE-BAYER-2016-124759

PATIENT
  Age: 37 Year
  Sex: Female
  Weight: 61 kg

DRUGS (1)
  1. MIRENA [Suspect]
     Active Substance: LEVONORGESTREL
     Indication: UTERINE DISORDER
     Dosage: 20 MCG/24HR, CONT
     Route: 015
     Dates: start: 20151203, end: 20160215

REACTIONS (7)
  - Headache [None]
  - Vaginal haemorrhage [None]
  - Mood altered [None]
  - Sexual dysfunction [None]
  - Abdominal pain lower [None]
  - Suicidal ideation [None]
  - Depression [Recovering/Resolving]

NARRATIVE: CASE EVENT DATE: 201601
